FAERS Safety Report 8826737 (Version 1)
Quarter: 2012Q4

REPORT INFORMATION
  Report Type: 
  Country: US (occurrence: US)
  Receive Date: 20121005
  Receipt Date: 20121005
  Transmission Date: 20130627
  Serious: Yes (Hospitalization, Disabling, Other)
  Sender: FDA-Public Use
  Company Number: CHPA2012US021213

PATIENT
  Age: 75 Year
  Sex: Female

DRUGS (6)
  1. BENEFIBER W/ WHEAT DEXTRIN [Suspect]
     Indication: NUTRITIONAL SUPPORT
     Dosage: 2 TSP, TID
     Route: 048
  2. VITAMIN B6 [Concomitant]
     Dosage: 1 DF, QD
     Route: 048
     Dates: start: 1992
  3. CALCIUM [Concomitant]
     Dosage: 1 DF, QD
     Route: 048
     Dates: start: 1992
  4. SINEX [Concomitant]
     Indication: BLADDER DISORDER
     Dosage: 1 DF, QD
     Dates: start: 2008
  5. NORCO [Concomitant]
     Indication: PAIN
     Dosage: 5 DF, QD
     Dates: start: 20080914
  6. COUMADIN ^BOOTS^ [Concomitant]
     Indication: ANTICOAGULANT THERAPY
     Route: 048
     Dates: end: 20080914

REACTIONS (9)
  - Postoperative thrombosis [Recovered/Resolved]
  - Intervertebral disc protrusion [Not Recovered/Not Resolved]
  - Procedural complication [Not Recovered/Not Resolved]
  - Wheelchair user [Not Recovered/Not Resolved]
  - Pain in extremity [Not Recovered/Not Resolved]
  - Hypertension [Not Recovered/Not Resolved]
  - Spinal osteoarthritis [Not Recovered/Not Resolved]
  - Hypoaesthesia [Not Recovered/Not Resolved]
  - Foot deformity [Not Recovered/Not Resolved]
